FAERS Safety Report 16463808 (Version 1)
Quarter: 2019Q2

REPORT INFORMATION
  Report Type: Spontaneous
  Country: US (occurrence: US)
  Receive Date: 20190621
  Receipt Date: 20190621
  Transmission Date: 20190711
  Serious: Yes (Death, Other)
  Sender: FDA-Public Use
  Company Number: US-PFIZER INC-2019260774

PATIENT
  Age: 76 Year
  Sex: Male
  Weight: 68.95 kg

DRUGS (3)
  1. TIKOSYN [Suspect]
     Active Substance: DOFETILIDE
     Dosage: 375 UG, 2X/DAY (EVERY 12 HOURS)
     Route: 048
     Dates: start: 20190611, end: 20190613
  2. TIKOSYN [Suspect]
     Active Substance: DOFETILIDE
     Indication: VENTRICULAR TACHYCARDIA
     Dosage: 125 UG, 2X/DAY (EVERY 12 HOURS)
     Route: 048
     Dates: start: 20190510, end: 20190517
  3. TIKOSYN [Suspect]
     Active Substance: DOFETILIDE
     Dosage: 250 UG, 2X/DAY (EVERY 12 HOURS)
     Route: 048
     Dates: start: 20190517, end: 20190611

REACTIONS (11)
  - Chest pain [Unknown]
  - Dyspnoea [Unknown]
  - Headache [Unknown]
  - Oedema [Unknown]
  - Drug ineffective for unapproved indication [Fatal]
  - Chest discomfort [Unknown]
  - Memory impairment [Unknown]
  - Nausea [Unknown]
  - Ventricular tachycardia [Fatal]
  - Palpitations [Unknown]
  - Bulbar palsy [Unknown]

NARRATIVE: CASE EVENT DATE: 2019
